FAERS Safety Report 7814550-9 (Version None)
Quarter: 2011Q4

REPORT INFORMATION
  Report Type: 
  Country: None (occurrence: None)
  Receive Date: 20111014
  Receipt Date: 20111006
  Transmission Date: 20120403
  Serious: Yes (Other)
  Sender: FDA-Public Use
  Company Number: JP-MPIJNJ-2011-04758

PATIENT

DRUGS (4)
  1. VELCADE [Suspect]
     Indication: MULTIPLE MYELOMA
     Dosage: UNK
     Route: 042
     Dates: start: 20091201
  2. CYCLOPHOSPHAMIDE [Concomitant]
     Indication: MULTIPLE MYELOMA
  3. ZOLEDRONIC ACID [Concomitant]
     Indication: MULTIPLE MYELOMA
  4. DEXAMETHASONE [Concomitant]
     Indication: MULTIPLE MYELOMA
     Dosage: UNK
     Dates: start: 20091201

REACTIONS (4)
  - INFECTIOUS PERITONITIS [None]
  - LARGE INTESTINAL HAEMORRHAGE [None]
  - DIVERTICULITIS [None]
  - HIV INFECTION [None]
